FAERS Safety Report 5796459-8 (Version None)
Quarter: 2008Q3

REPORT INFORMATION
  Report Type: 
  Country: None (occurrence: None)
  Receive Date: 20080701
  Receipt Date: 20080619
  Transmission Date: 20090109
  Serious: Yes (Hospitalization, Other)
  Sender: FDA-Public Use
  Company Number: PHHY2008JP10610

PATIENT
  Age: 39 Year
  Sex: Female
  Weight: 34 kg

DRUGS (2)
  1. TEGRETOL [Suspect]
     Dosage: 750 MG
  2. VITAMIN D [Concomitant]
     Dosage: 1UG
     Route: 048
     Dates: start: 20011001

REACTIONS (4)
  - BLOOD PARATHYROID HORMONE ABNORMAL [None]
  - BONE DENSITY DECREASED [None]
  - HYPOCALCAEMIA [None]
  - VITAMIN D DEFICIENCY [None]
